FAERS Safety Report 19088874 (Version 3)
Quarter: 2021Q2

REPORT INFORMATION
  Report Type: Spontaneous
  Country: ES (occurrence: ES)
  Receive Date: 20210403
  Receipt Date: 20210427
  Transmission Date: 20210717
  Serious: Yes (Hospitalization, Other)
  Sender: FDA-Public Use
  Company Number: ES-AUROBINDO-AUR-APL-2021-013443

PATIENT
  Sex: Female
  Weight: 65 kg

DRUGS (5)
  1. METFORMIN FILM?COATED TABLET [Suspect]
     Active Substance: METFORMIN HYDROCHLORIDE
     Indication: TYPE 2 DIABETES MELLITUS
     Dosage: 850 MILLIGRAM, TWO TIMES A DAY
     Route: 048
  2. INSULIN GLARGINE [Suspect]
     Active Substance: INSULIN GLARGINE
     Indication: TYPE 2 DIABETES MELLITUS
     Dosage: 70 INTERNATIONAL UNIT, ONCE A DAY
     Route: 058
  3. METFORMIN FILM?COATED TABLET [Suspect]
     Active Substance: METFORMIN HYDROCHLORIDE
     Dosage: 850 MILLIGRAM, ONCE A DAY
     Route: 048
  4. INVOKANA [Concomitant]
     Active Substance: CANAGLIFLOZIN
     Indication: TYPE 2 DIABETES MELLITUS
     Dosage: 300 MILLIGRAM,1/24H HALF A DAY
     Route: 048
  5. INSULIN GLARGINE [Suspect]
     Active Substance: INSULIN GLARGINE
     Dosage: 60 INTERNATIONAL UNIT, ONCE A DAY
     Route: 058
     Dates: start: 2018

REACTIONS (10)
  - Arrhythmia [Recovered/Resolved]
  - Pulmonary oedema [Recovering/Resolving]
  - Multiple use of single-use product [Unknown]
  - Intentional product misuse [Unknown]
  - Hyperglycaemia [Recovered/Resolved]
  - Colitis [Recovered/Resolved]
  - Product storage error [Unknown]
  - Cerebrovascular accident [Recovered/Resolved]
  - Blood glucose increased [Recovering/Resolving]
  - Depressed mood [Unknown]

NARRATIVE: CASE EVENT DATE: 201908
